FAERS Safety Report 13891635 (Version 1)
Quarter: 2017Q3

REPORT INFORMATION
  Report Type: Spontaneous
  Country: US (occurrence: US)
  Receive Date: 20170822
  Receipt Date: 20170822
  Transmission Date: 20171127
  Serious: Yes (Other)
  Sender: FDA-Public Use
  Company Number: US-PFIZER INC-2017361277

PATIENT
  Sex: Female

DRUGS (2)
  1. LYRICA [Suspect]
     Active Substance: PREGABALIN
     Dosage: UNK
  2. GABAPENTIN. [Suspect]
     Active Substance: GABAPENTIN
     Dosage: UNK
     Dates: end: 20170817

REACTIONS (4)
  - Bladder prolapse [Unknown]
  - Malaise [Unknown]
  - Seizure [Unknown]
  - Urinary tract disorder [Unknown]

NARRATIVE: CASE EVENT DATE: 20170817
